FAERS Safety Report 5405633-1 (Version None)
Quarter: 2007Q3

REPORT INFORMATION
  Report Type: 
  Country: None (occurrence: None)
  Receive Date: 20070806
  Receipt Date: 20070802
  Transmission Date: 20080115
  Serious: Yes (Life-Threatening)
  Sender: FDA-Public Use
  Company Number: PHBS2007SE12823

PATIENT
  Age: 33 Year
  Sex: Female

DRUGS (2)
  1. TEGRETOL [Suspect]
     Dosage: 300 TABLETS, ONCE/SINGLE
     Route: 048
     Dates: start: 20070524, end: 20070524
  2. ALCOHOL [Suspect]

REACTIONS (5)
  - DRUG LEVEL INCREASED [None]
  - GASTRIC LAVAGE [None]
  - LOSS OF CONSCIOUSNESS [None]
  - OVERDOSE [None]
  - UNRESPONSIVE TO STIMULI [None]
